FAERS Safety Report 9630629 (Version 1)
Quarter: 2013Q4

REPORT INFORMATION
  Report Type: Spontaneous
  Country: US (occurrence: None)
  Receive Date: 20131015
  Receipt Date: 20131015
  Transmission Date: 20140711
  Serious: Yes (Death)
  Sender: FDA-Public Use
  Company Number: FK201304567

PATIENT
  Age: 66 Year
  Sex: Female

DRUGS (1)
  1. METHOTREXATE (METHOTREXATE) (METHOTREXATE) [Suspect]
     Indication: RHEUMATOID ARTHRITIS

REACTIONS (5)
  - Ulcer [None]
  - Pancytopenia [None]
  - Toxicity to various agents [None]
  - Dermatitis [None]
  - Intertrigo [None]
